FAERS Safety Report 7146061-0 (Version None)
Quarter: 2010Q4

REPORT INFORMATION
  Report Type: 
  Country: None (occurrence: None)
  Receive Date: 20101208
  Receipt Date: 20100929
  Transmission Date: 20110411
  Serious: No
  Sender: FDA-Public Use
  Company Number: US-BAYER-201022223BCC

PATIENT
  Sex: Female
  Weight: 55.909 kg

DRUGS (3)
  1. ALEVE [Suspect]
     Dosage: 220 MG, BID
     Route: 048
     Dates: start: 20100101
  2. THYROID THERAPY [Concomitant]
  3. BAYER CHEWABLE LOW DOSE BABY ASPIRIN TABLET CHERRY [Concomitant]

REACTIONS (1)
  - RASH MACULAR [None]
